FAERS Safety Report 4885626-3 (Version None)
Quarter: 2005Q4

REPORT INFORMATION
  Report Type: 
  Country: None (occurrence: None)
  Receive Date: 20051220
  Receipt Date: 20041223
  Transmission Date: 20060501
  Serious: Yes (Other)
  Sender: FDA-Public Use
  Company Number: HQWYE181923DEC04

PATIENT
  Age: 65 Year
  Sex: Female

DRUGS (3)
  1. EFFEXOR XR [Suspect]
     Dosage: 300 MG 1X PER 1 DAY
     Dates: start: 20040401, end: 20041201
  2. BUSPAR [Concomitant]
  3. HYDROCORTISONE [Concomitant]

REACTIONS (2)
  - DRUG INEFFECTIVE [None]
  - SOCIAL AVOIDANT BEHAVIOUR [None]
